FAERS Safety Report 8829832 (Version 2)
Quarter: 2013Q1

REPORT INFORMATION
  Report Type: Spontaneous
  Country: US (occurrence: US)
  Receive Date: 20121008
  Receipt Date: 20130128
  Transmission Date: 20140127
  Serious: Yes (Other)
  Sender: FDA-Public Use
  Company Number: US-PFIZER INC-2012246423

PATIENT
  Age: 63 Year
  Sex: Male
  Weight: 74.83 kg

DRUGS (10)
  1. LYRICA [Suspect]
     Indication: PELVIC PAIN
     Dosage: 25 MG, DAILY
     Route: 048
  2. LYRICA [Suspect]
     Indication: NEURALGIA
     Dosage: 25 MG, 2X/DAY
  3. VITAMIN D3 [Concomitant]
     Dosage: 800 IU, 1X/DAY
  4. AMBIEN [Concomitant]
     Dosage: 5 MG TABTET 1/2-1 TAB, AS NEEDED
  5. SIMVASTATIN [Concomitant]
     Dosage: 40 MG, 1X/DAY
  6. CALCIUM [Concomitant]
     Dosage: 500 MG, 2X/DAY
  7. LEVOCETIRIZINE DIHYDROCHLORIDE [Concomitant]
     Dosage: 5 MG, 1X/DAY
  8. PREDNISONE [Concomitant]
     Dosage: 20 MG, 1X/DAY
     Dates: end: 20130119
  9. OMEPRAZOLE [Concomitant]
     Dosage: 40 MG, 1X/DAY
  10. PRILOSEC [Concomitant]
     Indication: HELICOBACTER INFECTION
     Dosage: 40 QD

REACTIONS (9)
  - Urinary tract infection [Unknown]
  - Toxicity to various agents [Unknown]
  - Hypercholesterolaemia [Not Recovered/Not Resolved]
  - Dizziness [Not Recovered/Not Resolved]
  - Sedation [Not Recovered/Not Resolved]
  - Off label use [Unknown]
  - Somnolence [Unknown]
  - Glycosylated haemoglobin increased [Unknown]
  - Fatigue [Unknown]
